FAERS Safety Report 6978415-7 (Version None)
Quarter: 2010Q3

REPORT INFORMATION
  Report Type: 
  Country: None (occurrence: None)
  Receive Date: 20100913
  Receipt Date: 20100831
  Transmission Date: 20110219
  Serious: Yes (Hospitalization, Other)
  Sender: FDA-Public Use
  Company Number: PHFR2010GB01557

PATIENT
  Sex: Female

DRUGS (5)
  1. CLOZARIL [Suspect]
     Indication: SCHIZOPHRENIA
     Dosage: 558 MG DAILY
     Route: 048
     Dates: start: 20080407
  2. MEMANTINE [Concomitant]
     Indication: DEMENTIA
     Dosage: 10 MG
     Route: 048
  3. SENNA [Concomitant]
     Indication: CONSTIPATION
     Dosage: 2 MG
     Route: 048
  4. DOCUSATE SODIUM [Concomitant]
     Dosage: 200 MG
     Route: 048
  5. OMACOR [Concomitant]
     Indication: DEMENTIA
     Dosage: X 4 CAPSULES
     Route: 048

REACTIONS (6)
  - ABDOMINAL PAIN [None]
  - CONSTIPATION [None]
  - DEMENTIA [None]
  - DIARRHOEA [None]
  - MALAISE [None]
  - MOBILITY DECREASED [None]
